FAERS Safety Report 7464023-0 (Version None)
Quarter: 2011Q2

REPORT INFORMATION
  Report Type: 
  Country: None (occurrence: None)
  Receive Date: 20110506
  Receipt Date: 20110428
  Transmission Date: 20111010
  Serious: Yes (Death, Hospitalization, Other)
  Sender: FDA-Public Use
  Company Number: US-GENZYME-CLOF-1001490

PATIENT
  Sex: Male
  Weight: 77 kg

DRUGS (11)
  1. CLOLAR [Suspect]
     Indication: ACUTE MYELOID LEUKAEMIA
     Dosage: 40 MG, QDX5
     Route: 042
     Dates: start: 20110305, end: 20110309
  2. COMPAZINE [Concomitant]
     Indication: PROPHYLAXIS OF NAUSEA AND VOMITING
     Dosage: 10 MG, QD
     Route: 048
     Dates: start: 20110301, end: 20110322
  3. MARINOL [Concomitant]
     Indication: NAUSEA
     Dosage: 2.5 MG, PRN
     Route: 048
     Dates: end: 20110322
  4. PROTONIX [Concomitant]
     Indication: GASTROOESOPHAGEAL REFLUX PROPHYLAXIS
     Dosage: 40 MG, QD
     Route: 042
     Dates: start: 20110228, end: 20110329
  5. MITOXANTRONE [Suspect]
     Indication: ACUTE MYELOID LEUKAEMIA
     Dosage: 16 MG, 3X/W ON 04 MAR, 06 MAR AND 07 MAR 2011
     Route: 042
     Dates: start: 20110304, end: 20110307
  6. FLOMAX [Concomitant]
     Indication: NEUROGENIC BLADDER
     Dosage: 0.4 MG, QD
     Route: 048
  7. ETOPOSIDE [Suspect]
     Indication: ACUTE MYELOID LEUKAEMIA
     Dosage: 200 MG, QD; PATIENT RECEIVED DOSES ON 04 MAR, 05 MAR (2330), 07 MAR (0100), 08 MAR, AND 09 MAR 2011
     Route: 042
     Dates: start: 20110304, end: 20110309
  8. ALLOPURINOL [Concomitant]
     Indication: PROPHYLAXIS
     Dosage: 300 MG, QD
     Route: 048
     Dates: start: 20110228, end: 20110322
  9. ACETAMINOPHEN [Concomitant]
     Indication: PREMEDICATION
     Dosage: 650 MG, PRN
     Route: 048
     Dates: start: 20110312, end: 20110329
  10. ZOFRAN [Concomitant]
     Indication: NAUSEA
     Dosage: 4 MG, PRN
     Route: 042
     Dates: start: 20110303, end: 20110315
  11. ZOFRAN [Concomitant]
     Dosage: 4 MG, PRN
     Route: 048
     Dates: start: 20110303, end: 20110315

REACTIONS (10)
  - FEBRILE NEUTROPENIA [None]
  - HYPOXIA [None]
  - NAUSEA [None]
  - HYPERGLYCAEMIA [None]
  - HYPOKALAEMIA [None]
  - FUNGAL INFECTION [None]
  - DIARRHOEA [None]
  - BLOOD CULTURE POSITIVE [None]
  - PAIN [None]
  - ENTERITIS [None]
